FAERS Safety Report 24175098 (Version 2)
Quarter: 2025Q2

REPORT INFORMATION
  Report Type: Report from Study
  Country: FR (occurrence: FR)
  Receive Date: 20240805
  Receipt Date: 20250513
  Transmission Date: 20250717
  Serious: Yes (Death, Other)
  Sender: NOVARTIS
  Company Number: FR-002147023-NVSC2024FR157700

PATIENT
  Sex: Male

DRUGS (1)
  1. PLUVICTO [Suspect]
     Active Substance: LUTETIUM LU-177 VIPIVOTIDE TETRAXETAN
     Indication: Prostate cancer
     Route: 042
     Dates: start: 20240424, end: 20240424

REACTIONS (13)
  - Sepsis [Fatal]
  - Multiple organ dysfunction syndrome [Fatal]
  - Renal impairment [Fatal]
  - Cystitis [Fatal]
  - Prostate cancer [Fatal]
  - Malignant neoplasm progression [Fatal]
  - Tumour invasion [Fatal]
  - Hypovolaemic shock [Unknown]
  - Septic shock [Unknown]
  - Tumour obstruction [Unknown]
  - Condition aggravated [Unknown]
  - Radiation inflammation [Unknown]
  - Peritoneal disorder [Unknown]
